FAERS Safety Report 10485648 (Version 1)
Quarter: 2014Q4

REPORT INFORMATION
  Report Type: Spontaneous
  Country: DK (occurrence: DK)
  Receive Date: 20141001
  Receipt Date: 20141001
  Transmission Date: 20150528
  Serious: Yes (Hospitalization, Disabling)
  Sender: FDA-Public Use
  Company Number: PHHY2014DK124734

PATIENT
  Age: 50 Year
  Sex: Male

DRUGS (5)
  1. PREDNISOLON [Concomitant]
     Active Substance: PREDNISOLONE
     Indication: POLYARTERITIS NODOSA
     Route: 048
  2. METHOTREXATE (METHOTREXATE SODIUM) [Suspect]
     Active Substance: METHOTREXATE SODIUM
     Indication: POLYARTERITIS NODOSA
     Dosage: 22.5 MG,QW
     Route: 048
  3. FOSAMAX PLUS D [Concomitant]
     Active Substance: ALENDRONATE SODIUM\CHOLECALCIFEROL
     Indication: OSTEOPATHIC TREATMENT
     Route: 048
  4. AMLODIPIN ACTAVIS//AMLODIPINE BESILATE [Concomitant]
     Indication: HYPERTENSION
     Route: 048
  5. ENALAPRIL ACTAVIS [Concomitant]
     Active Substance: ENALAPRIL
     Indication: HYPERTENSION
     Route: 048

REACTIONS (1)
  - Renal cancer [Recovered/Resolved with Sequelae]

NARRATIVE: CASE EVENT DATE: 201406
